FAERS Safety Report 9279991 (Version 1)
Quarter: 2013Q2

REPORT INFORMATION
  Report Type: Spontaneous
  Country: US (occurrence: None)
  Receive Date: 20130506
  Receipt Date: 20130506
  Transmission Date: 20140414
  Serious: Yes (Hospitalization)
  Sender: FDA-Public Use
  Company Number: None

PATIENT
  Age: 78 Year
  Sex: Male

DRUGS (1)
  1. DURAGESIC [Suspect]
     Dosage: 125 MCG/HR PATCH
     Dates: start: 20121208

REACTIONS (4)
  - Overdose [None]
  - Mental status changes [None]
  - Metabolic encephalopathy [None]
  - Drug administration error [None]
